FAERS Safety Report 8784128 (Version 1)
Quarter: 2012Q4

REPORT INFORMATION
  Report Type: Spontaneous
  Country: US (occurrence: None)
  Receive Date: 20120829
  Receipt Date: 20120829
  Transmission Date: 20130627
  Serious: Yes (Other)
  Sender: FDA-Public Use
  Company Number: TPA2012A01498

PATIENT
  Age: 72 Year
  Sex: Male
  Weight: 106.6 kg

DRUGS (1)
  1. ACTOS (PIOGLITAZONE HYDROCHLORIDE) [Suspect]
     Indication: TYPE II DIABETES MELLITUS
     Dates: start: 20050408, end: 20110707

REACTIONS (2)
  - Bladder cancer [None]
  - Prostate cancer [None]
